FAERS Safety Report 7037707-6 (Version None)
Quarter: 2010Q4

REPORT INFORMATION
  Report Type: 
  Country: None (occurrence: None)
  Receive Date: 20101011
  Receipt Date: 20101004
  Transmission Date: 20110411
  Serious: Yes (Death)
  Sender: FDA-Public Use
  Company Number: JP-MERCK-1009USA03638

PATIENT
  Age: 67 Year
  Sex: Male
  Weight: 60 kg

DRUGS (7)
  1. DECADRON [Suspect]
     Indication: MULTIPLE MYELOMA
     Route: 065
     Dates: start: 20070801, end: 20070801
  2. DECADRON [Suspect]
     Route: 065
     Dates: start: 20070601, end: 20070601
  3. DECADRON [Suspect]
     Route: 065
     Dates: start: 20070101, end: 20070101
  4. VELCADE [Suspect]
     Indication: MULTIPLE MYELOMA
     Route: 042
     Dates: start: 20070101, end: 20070101
  5. VELCADE [Suspect]
     Route: 042
     Dates: start: 20070801, end: 20070801
  6. FUNGUARD [Suspect]
     Indication: BRONCHOPULMONARY ASPERGILLOSIS
     Route: 042
     Dates: start: 20070801, end: 20070801
  7. VFEND [Suspect]
     Indication: BRONCHOPULMONARY ASPERGILLOSIS
     Route: 042
     Dates: start: 20070101, end: 20070101

REACTIONS (1)
  - ZYGOMYCOSIS [None]
